FAERS Safety Report 4825538-4 (Version None)
Quarter: 2005Q4

REPORT INFORMATION
  Report Type: 
  Country: None (occurrence: None)
  Receive Date: 20051111
  Receipt Date: 20050822
  Transmission Date: 20060501
  Serious: No
  Sender: FDA-Public Use
  Company Number: US-GLAXOSMITHKLINE-A0571220A

PATIENT
  Age: 81 Year
  Sex: Male

DRUGS (12)
  1. AVODART [Suspect]
     Dosage: .5MG PER DAY
     Route: 048
     Dates: start: 20040801
  2. LEVOTHYROXINE [Concomitant]
  3. ATENOLOL [Concomitant]
  4. ATACAND [Concomitant]
  5. HYDROCHLOROTHIAZIDE [Concomitant]
  6. COREG [Concomitant]
  7. ASPIRIN [Concomitant]
  8. OMEPRAZOLE [Concomitant]
  9. CENTRUM [Concomitant]
  10. METAMUCIL [Concomitant]
  11. MILK OF MAGNESIA TAB [Concomitant]
  12. SIMVASTATIN [Concomitant]

REACTIONS (1)
  - DRUG INEFFECTIVE [None]
